FAERS Safety Report 7055204-9 (Version None)
Quarter: 2010Q4

REPORT INFORMATION
  Report Type: 
  Country: None (occurrence: None)
  Receive Date: 20101021
  Receipt Date: 20101007
  Transmission Date: 20110411
  Serious: Yes (Other)
  Sender: FDA-Public Use
  Company Number: GB-RANBAXY-2010R1-38839

PATIENT

DRUGS (5)
  1. AMPICILLIN SODIUM/SULBACTAM SODIUM [Suspect]
     Indication: INFECTION
     Dosage: UNK
     Route: 048
     Dates: start: 20100922
  2. PREDNISOLONE [Suspect]
     Indication: INFECTION
     Dosage: UNK
     Route: 065
     Dates: start: 20100923
  3. OMEPRAZOLE [Concomitant]
     Indication: PRODUCT USED FOR UNKNOWN INDICATION
     Dosage: UNK
     Route: 048
  4. PETHIDINE [Concomitant]
     Indication: PAIN
     Dosage: UNK
     Route: 048
  5. STEMETIL [Concomitant]
     Indication: NAUSEA
     Dosage: UNK
     Route: 048

REACTIONS (2)
  - BLOOD PRESSURE INCREASED [None]
  - TACHYCARDIA [None]
